FAERS Safety Report 7296350-4 (Version None)
Quarter: 2011Q1

REPORT INFORMATION
  Report Type: 
  Country: None (occurrence: None)
  Receive Date: 20110211
  Receipt Date: 20110211
  Transmission Date: 20110831
  Serious: Yes (Disabling)
  Sender: FDA-Public Use
  Company Number: None

PATIENT
  Sex: Female
  Weight: 68.0396 kg

DRUGS (2)
  1. ACTONEL [Suspect]
     Indication: OSTEOPOROSIS
     Dosage: 10 MG WEEKLY
     Dates: start: 20010101
  2. ACTONEL [Suspect]
     Indication: OSTEOPOROSIS
     Dosage: 35 MG MONTHLY
     Dates: start: 20090101

REACTIONS (3)
  - SPINAL FRACTURE [None]
  - INCORRECT DRUG ADMINISTRATION DURATION [None]
  - PAIN [None]
